FAERS Safety Report 9303461 (Version 1)
Quarter: 2013Q2

REPORT INFORMATION
  Report Type: Spontaneous
  Country: US (occurrence: None)
  Receive Date: 20130521
  Receipt Date: 20130521
  Transmission Date: 20140414
  Serious: Yes (Other)
  Sender: FDA-Public Use
  Company Number: None

PATIENT
  Age: 53 Year
  Sex: Male
  Weight: 79.38 kg

DRUGS (1)
  1. LOVASTATIN [Suspect]
     Dosage: 20 MG DAILY PO?2/11 - 4/17/13
     Route: 048
     Dates: end: 20130417

REACTIONS (2)
  - Urticaria [None]
  - Angioedema [None]
